FAERS Safety Report 10072351 (Version 1)
Quarter: 2014Q2

REPORT INFORMATION
  Report Type: Spontaneous
  Country: US (occurrence: None)
  Receive Date: 20140410
  Receipt Date: 20140410
  Transmission Date: 20141212
  Serious: No
  Sender: FDA-Public Use
  Company Number: None

PATIENT
  Age: 32 Year
  Sex: Male
  Weight: 53.4 kg

DRUGS (15)
  1. NIACIN [Suspect]
     Indication: CALCINOSIS
     Dosage: 1 DOSE
     Route: 048
     Dates: start: 20140307
  2. ACETAZOLAMIDE [Concomitant]
  3. ALUMINUM HYDROXIDE [Concomitant]
  4. ANAKINRA [Concomitant]
  5. DOCUSATE [Concomitant]
  6. FENTANYL TRANSDERMAL PATCH [Concomitant]
  7. MIRALAX [Concomitant]
  8. PROBENECID [Concomitant]
  9. SEVELAMER CARBONATE [Concomitant]
  10. VANCOMYCIN [Concomitant]
  11. MAGNESIUM CITRATE [Concomitant]
  12. METOPROLOL TARTRATE [Concomitant]
  13. NALOXONE [Concomitant]
  14. ONDANSETRON [Concomitant]
  15. OXYCODONE [Concomitant]

REACTIONS (8)
  - Feeling hot [None]
  - Head discomfort [None]
  - Dizziness [None]
  - Palpitations [None]
  - Dizziness [None]
  - Flushing [None]
  - Blood pressure increased [None]
  - Oxygen saturation decreased [None]
